FAERS Safety Report 25026405 (Version 1)
Quarter: 2025Q1

REPORT INFORMATION
  Report Type: Spontaneous
  Country: PL (occurrence: PL)
  Receive Date: 20250301
  Receipt Date: 20250301
  Transmission Date: 20250409
  Serious: Yes (Other)
  Sender: ACCORD
  Company Number: PL-MLMSERVICE-20250210-PI404119-00232-1

PATIENT
  Age: 70 Year

DRUGS (2)
  1. MYCOPHENOLATE MOFETIL [Suspect]
     Active Substance: MYCOPHENOLATE MOFETIL
     Indication: Systemic lupus erythematosus
  2. MYCOPHENOLATE MOFETIL [Suspect]
     Active Substance: MYCOPHENOLATE MOFETIL
     Indication: Serositis

REACTIONS (3)
  - Herpes zoster [Unknown]
  - Post herpetic neuralgia [Unknown]
  - Off label use [Unknown]
